FAERS Safety Report 10011555 (Version 1)
Quarter: 2014Q1

REPORT INFORMATION
  Report Type: Spontaneous
  Country: JP (occurrence: JP)
  Receive Date: 20140314
  Receipt Date: 20140314
  Transmission Date: 20141002
  Serious: Yes (Other)
  Sender: FDA-Public Use
  Company Number: JP-ASTELLAS-2014JP002062

PATIENT
  Age: 28 Year
  Sex: Male

DRUGS (14)
  1. FUNGUARD [Suspect]
     Indication: DERMATOPHYTOSIS
     Dosage: 50 MG, UNKNOWN/D
     Route: 065
     Dates: start: 20120618, end: 20120625
  2. TRAFERMIN [Concomitant]
     Indication: ULCER
     Dosage: UNK
     Route: 065
     Dates: start: 2012
  3. TRAFERMIN [Concomitant]
     Indication: NECROTISING FASCIITIS
  4. ALPROSTADIL ALFADEX [Concomitant]
     Indication: ULCER
     Dosage: UNK
     Route: 061
     Dates: start: 2012
  5. ALPROSTADIL ALFADEX [Concomitant]
     Indication: NECROTISING FASCIITIS
  6. DEXAMETHASONE [Concomitant]
     Indication: HISTIOCYTOSIS HAEMATOPHAGIC
     Dosage: 16.5 MG, UNKNOWN/D
     Route: 065
     Dates: start: 2011
  7. CYCLOSPORIN [Concomitant]
     Indication: HISTIOCYTOSIS HAEMATOPHAGIC
     Dosage: UNK
     Route: 065
     Dates: start: 2011, end: 20120714
  8. ITRACONAZOLE [Concomitant]
     Indication: INFECTION PROPHYLAXIS
     Dosage: 200 MG, UNKNOWN/D
     Route: 048
     Dates: start: 201201, end: 2012
  9. PREDONINE                          /00016201/ [Concomitant]
     Indication: HISTIOCYTOSIS HAEMATOPHAGIC
     Dosage: 120 MG, UNKNOWN/D
     Route: 048
  10. PREDONINE                          /00016201/ [Concomitant]
     Dosage: 100 MG, UNKNOWN/D
     Route: 048
  11. PREDONINE                          /00016201/ [Concomitant]
     Dosage: 120 MG, UNKNOWN/D
     Route: 048
  12. PREDONINE                          /00016201/ [Concomitant]
     Dosage: 90 MG, UNKNOWN/D
     Route: 048
     Dates: end: 20120710
  13. PREDONINE                          /00016201/ [Concomitant]
     Dosage: 60 MG, UNKNOWN/D
     Route: 048
     Dates: start: 20120710
  14. PREDONINE                          /00016201/ [Concomitant]
     Dosage: 20 MG, UNKNOWN/D
     Route: 048

REACTIONS (2)
  - Drug ineffective for unapproved indication [Unknown]
  - Dermatophytosis [Unknown]
